FAERS Safety Report 18749704 (Version 1)
Quarter: 2021Q1

REPORT INFORMATION
  Report Type: Spontaneous
  Country: FR (occurrence: FR)
  Receive Date: 20210117
  Receipt Date: 20210117
  Transmission Date: 20210419
  Serious: Yes (Hospitalization)
  Sender: FDA-Public Use
  Company Number: FR-TEVA-2021-FR-1868530

PATIENT
  Age: 31 Year
  Sex: Male
  Weight: 100 kg

DRUGS (2)
  1. NAPROXENE [Suspect]
     Active Substance: NAPROXEN
     Indication: PAIN
     Dosage: 1100 MG
     Route: 048
     Dates: start: 20201207, end: 20201212
  2. CODEINE [Suspect]
     Active Substance: CODEINE
     Indication: PAIN
     Dosage: 30 MG
     Route: 048
     Dates: start: 20201207, end: 20201212

REACTIONS (1)
  - Pancreatitis acute [Recovering/Resolving]

NARRATIVE: CASE EVENT DATE: 20201212
